FAERS Safety Report 24728014 (Version 1)
Quarter: 2024Q4

REPORT INFORMATION
  Report Type: Spontaneous
  Country: GB (occurrence: GB)
  Receive Date: 20241212
  Receipt Date: 20241212
  Transmission Date: 20250115
  Serious: Yes (Disabling)
  Sender: ELI LILLY AND COMPANY
  Company Number: GB-MHRA-TPP46544248C11294289YC1733312932854

PATIENT
  Age: 53 Year
  Sex: Female
  Weight: 129 kg

DRUGS (14)
  1. MOUNJARO [Suspect]
     Active Substance: TIRZEPATIDE
     Indication: Product used for unknown indication
     Dosage: 2.5 MG, UNKNOWN
     Route: 065
     Dates: start: 20241113
  2. DULOXETINE [Concomitant]
     Active Substance: DULOXETINE
     Indication: Product used for unknown indication
     Dosage: 1 DOSAGE FORM, DAILY
     Dates: start: 20240520
  3. OZEMPIC [Concomitant]
     Active Substance: SEMAGLUTIDE
     Indication: Product used for unknown indication
     Dosage: 1 DOSAGE FORM, WEEKLY (1/W)
     Route: 058
     Dates: start: 20241009, end: 20241106
  4. PREDNISOLONE [Concomitant]
     Active Substance: PREDNISOLONE
     Indication: Product used for unknown indication
     Dosage: 8 DOSAGE FORM, TID
     Dates: start: 20241127, end: 20241130
  5. AMLODIPINE [Concomitant]
     Active Substance: AMLODIPINE BESYLATE
     Indication: Product used for unknown indication
     Dosage: 1 DOSAGE FORM, DAILY
     Dates: start: 20240520
  6. ATORVASTATIN [Concomitant]
     Active Substance: ATORVASTATIN
     Indication: Blood cholesterol abnormal
     Dosage: 1 DOSAGE FORM, EACH EVENING
     Dates: start: 20240520
  7. EMPAGLIFLOZIN [Concomitant]
     Active Substance: EMPAGLIFLOZIN
     Indication: Product used for unknown indication
     Dosage: 1 DOSAGE FORM, DAILY
     Dates: start: 20240520
  8. METFORMIN [Concomitant]
     Active Substance: METFORMIN HYDROCHLORIDE
     Indication: Product used for unknown indication
     Dosage: 2 DOSAGE FORM, EACH MORNING
     Dates: start: 20240520
  9. ESTRADIOL [Concomitant]
     Active Substance: ESTRADIOL
     Indication: Product used for unknown indication
     Dosage: UNK
     Dates: start: 20240520
  10. PROGESTERONE [Concomitant]
     Active Substance: PROGESTERONE
     Indication: Product used for unknown indication
     Dosage: 1 DOSAGE FORM, EACH EVENING
     Dates: start: 20240520
  11. RAMIPRIL [Concomitant]
     Active Substance: RAMIPRIL
     Indication: Product used for unknown indication
     Dosage: 1 DOSAGE FORM, DAILY
     Dates: start: 20240520
  12. ALOGLIPTIN [Concomitant]
     Active Substance: ALOGLIPTIN
     Indication: Product used for unknown indication
     Dosage: 1 DOSAGE FORM, DAILY
     Dates: start: 20240606, end: 20241009
  13. INDAPAMIDE [Concomitant]
     Active Substance: INDAPAMIDE
     Indication: Product used for unknown indication
     Dosage: 1 DOSAGE FORM, EACH MORNING
     Dates: start: 20240606
  14. GLICLAZIDE [Concomitant]
     Active Substance: GLICLAZIDE
     Indication: Blood glucose abnormal
     Dosage: 1 DOSAGE FORM, EACH MORNING
     Dates: start: 20241204

REACTIONS (4)
  - Urticaria [Recovered/Resolved]
  - Lip blister [Unknown]
  - Rash [Unknown]
  - Diarrhoea [Unknown]
